FAERS Safety Report 20456637 (Version 1)
Quarter: 2022Q1

REPORT INFORMATION
  Report Type: Other
  Country: DE (occurrence: DE)
  Receive Date: 20220210
  Receipt Date: 20220210
  Transmission Date: 20220423
  Serious: Yes (Congenital Anomaly, Other)
  Sender: FDA-Public Use
  Company Number: DE-EMBRYOTOX-202007702

PATIENT
  Age: 1 Day
  Sex: Male
  Weight: 1.865 kg

DRUGS (2)
  1. QUETIAPINE FUMARATE [Suspect]
     Active Substance: QUETIAPINE FUMARATE
     Indication: Depression
     Dosage: 150 MILLIGRAM, QD,150 MG/D (BIS 100)
     Route: 064
     Dates: start: 20200606, end: 20210218
  2. FLUOXETINE [Suspect]
     Active Substance: FLUOXETINE HYDROCHLORIDE
     Indication: Depression
     Dosage: 40 MILLIGRAM, QD, 40 MG/D (BIS 30
     Route: 064
     Dates: start: 20200606, end: 20210218

REACTIONS (9)
  - Premature baby [Unknown]
  - Small for dates baby [Unknown]
  - Hypoglycaemia neonatal [Recovered/Resolved]
  - Feeling jittery [Recovered/Resolved]
  - Hypospadias [Unknown]
  - Tremor neonatal [Recovered/Resolved]
  - Drug withdrawal syndrome neonatal [Recovered/Resolved]
  - Low birth weight baby [Unknown]
  - Foetal exposure during pregnancy [Unknown]

NARRATIVE: CASE EVENT DATE: 20210201
